FAERS Safety Report 8355285-6 (Version None)
Quarter: 2012Q2

REPORT INFORMATION
  Report Type: 
  Country: None (occurrence: None)
  Receive Date: 20120511
  Receipt Date: 20110321
  Transmission Date: 20120825
  Serious: No
  Sender: FDA-Public Use
  Company Number: US-TEVA-2011001306

PATIENT
  Sex: Female
  Weight: 64.468 kg

DRUGS (2)
  1. NUVIGIL [Suspect]
     Indication: FATIGUE
     Dosage: 150 MILLIGRAM;
     Route: 048
     Dates: start: 20110311
  2. COPAXONE [Concomitant]
     Dates: start: 20060101

REACTIONS (3)
  - DRUG EFFECT INCREASED [None]
  - ANXIETY [None]
  - FEELING JITTERY [None]
